FAERS Safety Report 8438292-4 (Version None)
Quarter: 2012Q2

REPORT INFORMATION
  Report Type: 
  Country: None (occurrence: None)
  Receive Date: 20120614
  Receipt Date: 20120610
  Transmission Date: 20120825
  Serious: No
  Sender: FDA-Public Use
  Company Number: US-BAYER-2012-058829

PATIENT
  Age: 18 Year
  Sex: Male
  Weight: 91 kg

DRUGS (1)
  1. ALEVE (CAPLET) [Suspect]
     Indication: HEADACHE
     Dosage: 4 DF, ONCE
     Dates: start: 20120610, end: 20120610

REACTIONS (1)
  - NO ADVERSE EVENT [None]
